FAERS Safety Report 6020975-7 (Version None)
Quarter: 2008Q4

REPORT INFORMATION
  Report Type: 
  Country: None (occurrence: None)
  Receive Date: 20081229
  Receipt Date: 20081219
  Transmission Date: 20090506
  Serious: Yes (Hospitalization)
  Sender: FDA-Public Use
  Company Number: FR-ABBOTT-08P-056-0494014-00

PATIENT
  Sex: Male

DRUGS (9)
  1. NORVIR [Suspect]
     Indication: DRUG USE FOR UNKNOWN INDICATION
     Dates: start: 20070401
  2. REYATAZ [Suspect]
     Indication: HIV INFECTION
     Route: 048
     Dates: start: 20070330, end: 20080904
  3. ZERIT [Suspect]
     Indication: DRUG USE FOR UNKNOWN INDICATION
     Dates: start: 19960101, end: 20070401
  4. LAMIVUDINE [Suspect]
     Indication: DRUG USE FOR UNKNOWN INDICATION
     Dates: start: 19960101, end: 20070401
  5. INDINIVIR SULFATE [Suspect]
     Indication: DRUG USE FOR UNKNOWN INDICATION
     Dates: start: 19960101, end: 20070401
  6. KIVEXA [Suspect]
     Indication: DRUG USE FOR UNKNOWN INDICATION
     Dates: start: 20070401
  7. EUPRESSYL [Concomitant]
     Indication: DRUG USE FOR UNKNOWN INDICATION
  8. SECTRAL [Concomitant]
     Indication: DRUG USE FOR UNKNOWN INDICATION
  9. CRESTOR [Concomitant]
     Indication: DRUG USE FOR UNKNOWN INDICATION

REACTIONS (4)
  - LIPODYSTROPHY ACQUIRED [None]
  - NEPHROLITHIASIS [None]
  - PYONEPHROSIS [None]
  - RENAL COLIC [None]
